FAERS Safety Report 9032017 (Version 2)
Quarter: 2013Q1

REPORT INFORMATION
  Report Type: Spontaneous
  Country: DE (occurrence: DE)
  Receive Date: 20130125
  Receipt Date: 20130131
  Transmission Date: 20140127
  Serious: Yes (Other)
  Sender: FDA-Public Use
  Company Number: DE-PFIZER INC-2013027826

PATIENT
  Age: 74 Year
  Sex: Male
  Weight: 83 kg

DRUGS (1)
  1. RAMIPRIL [Suspect]
     Indication: DYSPNOEA EXERTIONAL
     Dosage: 2.5 MG, DAILY
     Route: 048
     Dates: start: 20120711, end: 20120920

REACTIONS (3)
  - Cough [Recovered/Resolved]
  - Sensation of foreign body [Recovered/Resolved]
  - Throat irritation [Recovered/Resolved]
